FAERS Safety Report 13109346 (Version 1)
Quarter: 2017Q1

REPORT INFORMATION
  Report Type: Spontaneous
  Country: US (occurrence: US)
  Receive Date: 20170112
  Receipt Date: 20170112
  Transmission Date: 20170428
  Serious: No
  Sender: FDA-Public Use
  Company Number: US-UNIQUE PHARMACEUTICAL LABORATORIES-2016RIS00186

PATIENT
  Age: 57 Year
  Sex: Female
  Weight: 67.35 kg

DRUGS (4)
  1. DICLOFENAC SODIUM DELAYED-RELEASE TABLETS USP 25MG [Suspect]
     Active Substance: DICLOFENAC SODIUM
     Indication: INFLAMMATION
     Dosage: 1 TABLETS, ONCE
     Route: 048
     Dates: start: 20161107, end: 20161107
  2. UNSPECIFIED GASTRIC REFLUX MEDICINE [Concomitant]
  3. UNSPECIFIED HIGH BLOOD PRESSURE MEDICATION [Concomitant]
     Active Substance: UNSPECIFIED INGREDIENT
  4. CHEWABLE MULTIVITAMIN [Concomitant]

REACTIONS (2)
  - Headache [Recovered/Resolved]
  - Ocular discomfort [Recovered/Resolved]

NARRATIVE: CASE EVENT DATE: 201611
